FAERS Safety Report 5996585-4 (Version None)
Quarter: 2008Q4

REPORT INFORMATION
  Report Type: 
  Country: None (occurrence: None)
  Receive Date: 20081212
  Receipt Date: 20081020
  Transmission Date: 20090506
  Serious: No
  Sender: FDA-Public Use
  Company Number: US-ABBOTT-08P-163-0482934-00

PATIENT
  Sex: Female
  Weight: 87.622 kg

DRUGS (3)
  1. HUMIRA [Suspect]
     Indication: CROHN'S DISEASE
     Dates: start: 20080925, end: 20080925
  2. HUMIRA [Suspect]
     Dates: start: 20080911, end: 20080911
  3. HUMIRA [Suspect]
     Dates: start: 20081009

REACTIONS (2)
  - ALOPECIA [None]
  - PYREXIA [None]
